FAERS Safety Report 8228445-2 (Version None)
Quarter: 2012Q1

REPORT INFORMATION
  Report Type: 
  Country: None (occurrence: None)
  Receive Date: 20120322
  Receipt Date: 20110718
  Transmission Date: 20120608
  Serious: Yes (Other)
  Sender: FDA-Public Use
  Company Number: US-BRISTOL-MYERS SQUIBB COMPANY-15859168

PATIENT
  Age: 77 Year
  Sex: Male

DRUGS (2)
  1. ERBITUX [Suspect]
     Indication: OROPHARYNGEAL CANCER STAGE UNSPECIFIED
     Dosage: INFUSION, ROUTE : PERIPHERAL IV, DOSE: 75CC/HR
     Route: 042
     Dates: start: 20091008
  2. ERBITUX [Suspect]
     Indication: HEAD AND NECK CANCER
     Dosage: INFUSION, ROUTE : PERIPHERAL IV, DOSE: 75CC/HR
     Route: 042
     Dates: start: 20091008

REACTIONS (4)
  - CONVULSION [None]
  - RESTLESSNESS [None]
  - MEDICATION ERROR [None]
  - ERYTHEMA [None]
